FAERS Safety Report 7733629-3 (Version None)
Quarter: 2011Q3

REPORT INFORMATION
  Report Type: 
  Country: None (occurrence: None)
  Receive Date: 20110907
  Receipt Date: 20110830
  Transmission Date: 20111222
  Serious: Yes (Other)
  Sender: FDA-Public Use
  Company Number: AU-AMGEN-AUSCT2011041198

PATIENT
  Age: 41 Year
  Sex: Female

DRUGS (9)
  1. DEXAMETHASONE [Concomitant]
     Dosage: UNK UNK, QD
     Route: 048
     Dates: start: 20110629, end: 20110719
  2. DENOSUMAB [Suspect]
     Indication: BONE GIANT CELL TUMOUR
     Dosage: 120 MG, Q4WK
     Route: 058
     Dates: start: 20110712
  3. MS CONTIN [Concomitant]
     Dosage: 10 MG, BID
     Route: 048
     Dates: start: 20110629
  4. CALCIUM CARBONATE [Concomitant]
     Dosage: UNK UNK, QD
     Route: 048
     Dates: start: 20110629
  5. COLOXYL WITH SENNA [Concomitant]
     Dosage: UNK UNK, BID
     Route: 048
     Dates: start: 20110629
  6. OSTELIN [Concomitant]
     Dosage: UNK UNK, QD
     Route: 048
  7. MAXOLON [Concomitant]
     Dosage: UNK UNK, PRN
     Route: 048
     Dates: start: 20110629
  8. GABAPENTIN [Concomitant]
     Dosage: 300 MG, BID
     Route: 048
     Dates: start: 20110629
  9. MORPHINE [Concomitant]
     Dosage: 10 MG, PRN
     Route: 048
     Dates: start: 20110629

REACTIONS (3)
  - RASH ERYTHEMATOUS [None]
  - BACK PAIN [None]
  - OEDEMA PERIPHERAL [None]
